FAERS Safety Report 12605657 (Version 2)
Quarter: 2017Q1

REPORT INFORMATION
  Report Type: Report from Study
  Country: US (occurrence: US)
  Receive Date: 20160729
  Receipt Date: 20170203
  Transmission Date: 20170428
  Serious: No
  Sender: FDA-Public Use
  Company Number: US-AMGEN-USASL2016096099

PATIENT
  Age: 54 Year
  Sex: Female

DRUGS (1)
  1. ENBREL [Suspect]
     Active Substance: ETANERCEPT
     Indication: ANKYLOSING SPONDYLITIS
     Dosage: 50 MG, QWK
     Route: 065
     Dates: start: 20160625

REACTIONS (11)
  - Nasopharyngitis [Unknown]
  - Peripheral swelling [Unknown]
  - Pain [Unknown]
  - Alopecia [Unknown]
  - Joint swelling [Unknown]
  - Off label use [Unknown]
  - Oral pruritus [Unknown]
  - Mobility decreased [Unknown]
  - Dysuria [Unknown]
  - Ear pruritus [Unknown]
  - Eye pruritus [Unknown]

NARRATIVE: CASE EVENT DATE: 2016
